FAERS Safety Report 5224703-4 (Version None)
Quarter: 2007Q1

REPORT INFORMATION
  Report Type: 
  Country: None (occurrence: None)
  Receive Date: 20070131
  Receipt Date: 20070122
  Transmission Date: 20070707
  Serious: Yes (Hospitalization)
  Sender: FDA-Public Use
  Company Number: FR-JNJFOC-20070105436

PATIENT
  Age: 42 Year
  Sex: Male
  Weight: 60 kg

DRUGS (1)
  1. REMICADE [Suspect]
     Indication: ANKYLOSING SPONDYLITIS
     Route: 042

REACTIONS (5)
  - ANTINUCLEAR ANTIBODY POSITIVE [None]
  - LUPUS-LIKE SYNDROME [None]
  - PERICARDITIS [None]
  - PLEURISY [None]
  - POLYARTHRITIS [None]
